FAERS Safety Report 18361783 (Version 7)
Quarter: 2024Q2

REPORT INFORMATION
  Report Type: Spontaneous
  Country: US (occurrence: None)
  Receive Date: 20201008
  Receipt Date: 20240410
  Transmission Date: 20240716
  Serious: Yes (Hospitalization, Disabling, Other)
  Sender: FDA-Public Use
  Company Number: 2020SF27234

PATIENT
  Age: 16070 Day
  Sex: Male

DRUGS (88)
  1. FARXIGA [Suspect]
     Active Substance: DAPAGLIFLOZIN PROPANEDIOL
     Indication: Type 2 diabetes mellitus
     Route: 048
     Dates: start: 20161108, end: 20170626
  2. FARXIGA [Suspect]
     Active Substance: DAPAGLIFLOZIN PROPANEDIOL
     Indication: Weight decreased
     Route: 048
     Dates: start: 20161108, end: 20170626
  3. FARXIGA [Suspect]
     Active Substance: DAPAGLIFLOZIN PROPANEDIOL
     Indication: Hypotension
     Route: 048
     Dates: start: 20161108, end: 20170626
  4. FARXIGA [Suspect]
     Active Substance: DAPAGLIFLOZIN PROPANEDIOL
     Indication: Type 2 diabetes mellitus
     Route: 048
     Dates: start: 20161109
  5. FARXIGA [Suspect]
     Active Substance: DAPAGLIFLOZIN PROPANEDIOL
     Indication: Weight decreased
     Route: 048
     Dates: start: 20161109
  6. FARXIGA [Suspect]
     Active Substance: DAPAGLIFLOZIN PROPANEDIOL
     Indication: Hypotension
     Route: 048
     Dates: start: 20161109
  7. FARXIGA [Suspect]
     Active Substance: DAPAGLIFLOZIN PROPANEDIOL
     Indication: Type 2 diabetes mellitus
     Route: 048
     Dates: start: 201701, end: 201706
  8. FARXIGA [Suspect]
     Active Substance: DAPAGLIFLOZIN PROPANEDIOL
     Indication: Weight decreased
     Route: 048
     Dates: start: 201701, end: 201706
  9. FARXIGA [Suspect]
     Active Substance: DAPAGLIFLOZIN PROPANEDIOL
     Indication: Hypotension
     Route: 048
     Dates: start: 201701, end: 201706
  10. AZITHROMYCIN [Concomitant]
     Active Substance: AZITHROMYCIN
     Dates: start: 20180611
  11. CITALOPRAM [Concomitant]
     Active Substance: CITALOPRAM\CITALOPRAM HYDROBROMIDE
     Dates: start: 20180522
  12. LOSARTAN [Concomitant]
     Active Substance: LOSARTAN
     Dates: start: 20180522
  13. ATORVASTATIN [Concomitant]
     Active Substance: ATORVASTATIN
     Dates: start: 20180522
  14. METFORMIN [Concomitant]
     Active Substance: METFORMIN HYDROCHLORIDE
     Dates: start: 20180522
  15. TEMAZEPAM [Concomitant]
     Active Substance: TEMAZEPAM
     Dates: start: 20180522
  16. VICTOZA [Concomitant]
     Active Substance: LIRAGLUTIDE
     Dates: start: 20180522
  17. SULFAMETHOXAZOLE\TRIMETHOPRIM [Concomitant]
     Active Substance: SULFAMETHOXAZOLE\TRIMETHOPRIM
     Dates: start: 20170927
  18. ACETAMINOPHEN\HYDROCODONE BITARTRATE [Concomitant]
     Active Substance: ACETAMINOPHEN\HYDROCODONE BITARTRATE
     Dates: start: 20170927
  19. HUMALOG [Concomitant]
     Active Substance: INSULIN LISPRO
     Dates: start: 20170814
  20. CIPROFLOXACIN [Concomitant]
     Active Substance: CIPROFLOXACIN
     Dates: start: 20170714
  21. OXYCODONE [Concomitant]
     Active Substance: OXYCODONE\OXYCODONE HYDROCHLORIDE
     Dates: start: 20170713
  22. IVERMECTIN [Concomitant]
     Active Substance: IVERMECTIN
     Dates: start: 20160819
  23. INVOKANA [Concomitant]
     Active Substance: CANAGLIFLOZIN
     Dates: start: 20160819
  24. PERMETHRIN [Concomitant]
     Active Substance: PERMETHRIN
     Dates: start: 20160819
  25. TRIAMCINOLONE [Concomitant]
     Active Substance: TRIAMCINOLONE
     Dates: start: 20160819
  26. BETAMETHASONE [Concomitant]
     Active Substance: BETAMETHASONE\BETAMETHASONE DIPROPIONATE
     Dates: start: 20160809
  27. NOVOLOG [Concomitant]
     Active Substance: INSULIN ASPART
     Dates: start: 20160809
  28. FENOFIBRATE [Concomitant]
     Active Substance: FENOFIBRATE
     Dates: start: 20160809
  29. HYDROCHLOROTHIAZIDE [Concomitant]
     Active Substance: HYDROCHLOROTHIAZIDE
     Dates: start: 20160809
  30. LIDOCAINE [Concomitant]
     Active Substance: LIDOCAINE
     Dates: start: 20170616
  31. GABAPENTIN [Concomitant]
     Active Substance: GABAPENTIN
     Dates: start: 20170616
  32. NIFEDIPINE [Concomitant]
     Active Substance: NIFEDIPINE
     Dates: start: 20170616
  33. FAMOTIDINE [Concomitant]
     Active Substance: FAMOTIDINE
     Dates: start: 20170717
  34. SENNA [Concomitant]
     Active Substance: SENNA LEAF\SENNOSIDES\SENNOSIDES A AND B
     Dates: start: 20170717
  35. ESCITALOPRAM [Concomitant]
     Active Substance: ESCITALOPRAM OXALATE
     Dates: start: 20170713
  36. DOCUSATE [Concomitant]
     Active Substance: DOCUSATE
     Dates: start: 20170712
  37. HEPARIN [Concomitant]
     Active Substance: HEPARIN SODIUM
     Dates: start: 20170712
  38. VANCOMYCIN [Concomitant]
     Active Substance: VANCOMYCIN
     Dates: start: 20170712
  39. FENTANYL [Concomitant]
     Active Substance: FENTANYL\FENTANYL CITRATE
     Dates: start: 20170712
  40. SCOPOLAMINE [Concomitant]
     Active Substance: SCOPOLAMINE
     Dates: start: 20170712
  41. GEMFIBROZIL [Concomitant]
     Active Substance: GEMFIBROZIL
     Dates: start: 20060109
  42. CELEBREX [Concomitant]
     Active Substance: CELECOXIB
     Dates: start: 20060109
  43. ACTOS [Concomitant]
     Active Substance: PIOGLITAZONE HYDROCHLORIDE
     Dates: start: 20060109
  44. JANUVIA [Concomitant]
     Active Substance: SITAGLIPTIN PHOSPHATE
     Dates: start: 20060109
  45. OMACOR [Concomitant]
     Active Substance: OMEGA-3-ACID ETHYL ESTERS
     Dates: start: 20060109
  46. BUPROPION [Concomitant]
     Active Substance: BUPROPION
     Dates: start: 20060109
  47. METOCLOPRAMIDE [Concomitant]
     Active Substance: METOCLOPRAMIDE
     Dates: start: 20060109
  48. PROPOFOL [Concomitant]
     Active Substance: PROPOFOL
     Dates: start: 20060109
  49. LEVOFLOXACIN [Concomitant]
     Active Substance: LEVOFLOXACIN
     Dates: start: 20060109
  50. MICONAZOLE [Concomitant]
     Active Substance: MICONAZOLE
     Dates: start: 20060109
  51. METRONIDAZOLE [Concomitant]
     Active Substance: METRONIDAZOLE
     Dates: start: 20060109
  52. LANTUS [Concomitant]
     Active Substance: INSULIN GLARGINE
  53. CEFTRIAXONE [Concomitant]
     Active Substance: CEFTRIAXONE\CEFTRIAXONE SODIUM
  54. ENOXAPARIN [Concomitant]
     Active Substance: ENOXAPARIN
  55. OLMESARTAN [Concomitant]
     Active Substance: OLMESARTAN
  56. OLMESARTAN MEDOXOMIL-HCTZ [Concomitant]
  57. METFORMIN HYDROCHLORIDE [Concomitant]
     Active Substance: METFORMIN HYDROCHLORIDE
  58. POTASSIUM CALVULANATE [Concomitant]
  59. AMOXICILLIN TRIHYDRATE [Concomitant]
     Active Substance: AMOXICILLIN
  60. CHANTIX [Concomitant]
     Active Substance: VARENICLINE TARTRATE
  61. DIAZEPAM [Concomitant]
     Active Substance: DIAZEPAM
     Dates: start: 20170616
  62. NYSTATIN [Concomitant]
     Active Substance: NYSTATIN
  63. TRESIBA [Concomitant]
     Active Substance: INSULIN DEGLUDEC
  64. BENZONATATE [Concomitant]
     Active Substance: BENZONATATE
  65. ESTRADIOL [Concomitant]
     Active Substance: ESTRADIOL
  66. MELATONIN [Concomitant]
     Active Substance: MELATONIN
  67. OZEMPIC [Concomitant]
     Active Substance: SEMAGLUTIDE
     Dates: start: 20060109
  68. SODIUM BICARBONATE [Concomitant]
     Active Substance: SODIUM BICARBONATE
     Dates: start: 20220127
  69. CARVEDILOL [Concomitant]
     Active Substance: CARVEDILOL
     Dates: start: 20220127
  70. ISOSORBIDE DINITRATE [Concomitant]
     Dates: start: 20220127
  71. BRIMONIDINE TARTARTE [Concomitant]
  72. SYNTHROID [Concomitant]
     Active Substance: LEVOTHYROXINE SODIUM
  73. NEOMYCIN [Concomitant]
     Active Substance: NEOMYCIN
  74. TORSEMIDE [Concomitant]
     Active Substance: TORSEMIDE
  75. PREGABALIN [Concomitant]
     Active Substance: PREGABALIN
  76. CLONIDINE [Concomitant]
     Active Substance: CLONIDINE
  77. CEFUROXIME [Concomitant]
     Active Substance: CEFUROXIME
  78. AURYXIA [Concomitant]
     Active Substance: TETRAFERRIC TRICITRATE DECAHYDRATE
  79. DIALYVITE [Concomitant]
     Active Substance: ASCORBIC ACID\BIOTIN\CALCIUM PANTOTHENATE\COBALAMIN\FOLIC ACID\NIACINAMIDE\PYRIDOXINE HYDROCHLORIDE\
  80. TROPICAMIDE [Concomitant]
     Active Substance: TROPICAMIDE
  81. MIDAZOLAM [Concomitant]
     Active Substance: MIDAZOLAM
  82. MOXIFLOXACIN [Concomitant]
     Active Substance: MOXIFLOXACIN
  83. TUMS [Concomitant]
     Active Substance: CALCIUM CARBONATE
  84. IOXHEOL [Concomitant]
  85. NITROGLYCERIN [Concomitant]
     Active Substance: NITROGLYCERIN
  86. BISACODYL [Concomitant]
     Active Substance: BISACODYL
  87. DOXYCYCLINE [Concomitant]
     Active Substance: DOXYCYCLINE
  88. FERROUS GLUCONATE [Concomitant]
     Active Substance: FERROUS GLUCONATE

REACTIONS (23)
  - Fournier^s gangrene [Unknown]
  - Sepsis [Unknown]
  - Infected dermal cyst [Unknown]
  - Scrotal abscess [Unknown]
  - Rectal abscess [Unknown]
  - Colon gangrene [Unknown]
  - Perineal abscess [Unknown]
  - Perirectal abscess [Unknown]
  - Cellulitis of male external genital organ [Unknown]
  - Cellulitis [Unknown]
  - Abscess limb [Unknown]
  - Deformity [Unknown]
  - Necrotising fasciitis [Unknown]
  - Necrosis [Unknown]
  - Chronic kidney disease [Unknown]
  - Acute kidney injury [Unknown]
  - Renal failure [Not Recovered/Not Resolved]
  - End stage renal disease [Unknown]
  - Kidney fibrosis [Unknown]
  - Scar [Unknown]
  - Anal incontinence [Unknown]
  - Nerve injury [Unknown]
  - Pain [Unknown]

NARRATIVE: CASE EVENT DATE: 20170414
